FAERS Safety Report 8355762-8 (Version None)
Quarter: 2012Q2

REPORT INFORMATION
  Report Type: 
  Country: None (occurrence: None)
  Receive Date: 20120514
  Receipt Date: 20120511
  Transmission Date: 20120825
  Serious: No
  Sender: FDA-Public Use
  Company Number: US-PFIZER INC-2011236553

PATIENT
  Sex: Female
  Weight: 81.633 kg

DRUGS (5)
  1. CHANTIX [Suspect]
     Indication: SMOKING CESSATION THERAPY
     Dosage: 2 TABLETS, DAILY
     Dates: start: 20110901, end: 20110901
  2. TYLENOL (CAPLET) [Suspect]
     Indication: HEADACHE
     Dosage: 500 MG, EVERY 4-6 HOURS AS NEEDED
     Dates: start: 20110901
  3. ASPIRIN [Suspect]
     Indication: HEADACHE
     Dosage: UNK, EVERY 4-6 HOURS AS NEEDED
     Dates: start: 20110901
  4. CHANTIX [Suspect]
     Dosage: 1 TABLET, DAILY
     Dates: start: 20110901, end: 20110901
  5. CHANTIX [Suspect]
     Dosage: 1 TABLET, DAILY
     Dates: start: 20110901

REACTIONS (2)
  - DRUG INEFFECTIVE [None]
  - HEADACHE [None]
